FAERS Safety Report 6955838-3 (Version None)
Quarter: 2010Q3

REPORT INFORMATION
  Report Type: 
  Country: None (occurrence: None)
  Receive Date: 20100830
  Receipt Date: 20100521
  Transmission Date: 20110219
  Serious: Yes (Other)
  Sender: FDA-Public Use
  Company Number: US-AMGEN-KDL413844

PATIENT
  Sex: Female

DRUGS (2)
  1. NPLATE [Suspect]
     Indication: IDIOPATHIC THROMBOCYTOPENIC PURPURA
     Dates: start: 20091019, end: 20100301
  2. CORTICOSTEROIDS [Concomitant]
     Dates: start: 20090607

REACTIONS (3)
  - HEADACHE [None]
  - NAUSEA [None]
  - REFUSAL OF TREATMENT BY PATIENT [None]
